FAERS Safety Report 7319604-1 (Version None)
Quarter: 2011Q1

REPORT INFORMATION
  Report Type: 
  Country: None (occurrence: None)
  Receive Date: 20110228
  Receipt Date: 20100609
  Transmission Date: 20110831
  Serious: Yes (Other)
  Sender: FDA-Public Use
  Company Number: A0864014A

PATIENT
  Sex: Male

DRUGS (3)
  1. UNSPECIFIED MEDICATION [Concomitant]
     Indication: GOUT
  2. ANTI-CHOLESTEROL MEDICATION [Concomitant]
  3. LAMICTAL [Suspect]
     Indication: BIPOLAR DISORDER
     Dosage: 100MG PER DAY
     Route: 048
     Dates: start: 20070101

REACTIONS (3)
  - PRURITUS [None]
  - RASH [None]
  - RASH VESICULAR [None]
